FAERS Safety Report 21753893 (Version 1)
Quarter: 2022Q4

REPORT INFORMATION
  Report Type: Spontaneous
  Country: US (occurrence: US)
  Receive Date: 20221220
  Receipt Date: 20221220
  Transmission Date: 20230113
  Serious: No
  Sender: FDA-Public Use
  Company Number: US-CELLTRION INC.-2022US002334

PATIENT

DRUGS (2)
  1. TRUXIMA [Suspect]
     Active Substance: RITUXIMAB-ABBS
     Indication: Phlebitis
     Dosage: 1000 MG EVERY 6 MONTHS
     Dates: start: 20210721
  2. TRUXIMA [Suspect]
     Active Substance: RITUXIMAB-ABBS
     Indication: Thrombophlebitis
     Dosage: 1000 MG EVERY 6 MONTHS
     Dates: start: 20220106

REACTIONS (3)
  - Phlebitis [Unknown]
  - Thrombophlebitis [Unknown]
  - Off label use [Unknown]

NARRATIVE: CASE EVENT DATE: 20210721
